FAERS Safety Report 10868938 (Version 2)
Quarter: 2015Q1

REPORT INFORMATION
  Report Type: Report from Study
  Country: MX (occurrence: MX)
  Receive Date: 20150225
  Receipt Date: 20150326
  Transmission Date: 20150721
  Serious: Yes (Death)
  Sender: FDA-Public Use
  Company Number: MX-SA-2015SA021209

PATIENT
  Sex: Male

DRUGS (1)
  1. LANTUS [Suspect]
     Active Substance: INSULIN GLARGINE
     Route: 058
     Dates: end: 201303

REACTIONS (1)
  - Death [Fatal]

NARRATIVE: CASE EVENT DATE: 201303
